FAERS Safety Report 8344121-X (Version None)
Quarter: 2012Q1

REPORT INFORMATION
  Report Type: 
  Country: None (occurrence: None)
  Receive Date: 20120330
  Receipt Date: 20010626
  Transmission Date: 20120608
  Serious: Yes (Hospitalization)
  Sender: FDA-Public Use
  Company Number: PHEH2001US05499

PATIENT
  Age: 77 Year
  Sex: Male

DRUGS (6)
  1. EXELON [Suspect]
     Dosage: 3 MG, BID
     Dates: start: 20010202
  2. NORVASC (AMLODIPINE ESILATE) [Concomitant]
  3. ASPIRIN [Concomitant]
  4. ISOSORBIDE DINITRATE [Concomitant]
  5. ZOCOR [Concomitant]
  6. NITROGLYCERIN ^SUMEX^ (GLYCERYL TRINITRATE) [Concomitant]

REACTIONS (1)
  - PALPITATIONS [None]
